FAERS Safety Report 13276950 (Version 1)
Quarter: 2017Q1

REPORT INFORMATION
  Report Type: Spontaneous
  Country: GB (occurrence: GB)
  Receive Date: 20170228
  Receipt Date: 20170228
  Transmission Date: 20170428
  Serious: Yes (Other)
  Sender: FDA-Public Use
  Company Number: GB-TEVA-743795ACC

PATIENT
  Age: 63 Year
  Sex: Male
  Weight: 82 kg

DRUGS (3)
  1. SINEMET CR [Concomitant]
     Active Substance: CARBIDOPA\LEVODOPA
  2. MIRTAZAPINE. [Suspect]
     Active Substance: MIRTAZAPINE
     Indication: ANXIETY
     Route: 048
     Dates: start: 201510, end: 201701
  3. BISACODYL. [Concomitant]
     Active Substance: BISACODYL

REACTIONS (5)
  - Flatulence [Unknown]
  - Nocturia [Recovering/Resolving]
  - Verbal abuse [Recovering/Resolving]
  - Micturition disorder [Recovering/Resolving]
  - Mood swings [Recovering/Resolving]

NARRATIVE: CASE EVENT DATE: 201605
